FAERS Safety Report 20891924 (Version 2)
Quarter: 2022Q3

REPORT INFORMATION
  Report Type: Other
  Country: CN (occurrence: None)
  Receive Date: 20220530
  Receipt Date: 20220706
  Transmission Date: 20221027
  Serious: Yes (Hospitalization)
  Sender: FDA-Public Use
  Company Number: CN-ROCHE-3102718

PATIENT
  Age: 64 Year
  Sex: Female
  Weight: 52 kg

DRUGS (2)
  1. CAPECITABINE [Suspect]
     Active Substance: CAPECITABINE
     Indication: Breast cancer metastatic
     Dosage: 1000 MG IN THE MORNING AND 1500 MG IN THE EVENING, 1 CYCLE EVERY 3 WEEKS FROM DAY 1 TO DAY 14
     Route: 048
     Dates: start: 20220425, end: 20220506
  2. LAPATINIB [Suspect]
     Active Substance: LAPATINIB
     Indication: Breast cancer metastatic
     Dosage: 1250 MG ONCE DAILY EVERY 3 WEEKS FOR 1 CYCLE; REGIMEN1
     Route: 048
     Dates: start: 20220425, end: 20220506

REACTIONS (1)
  - Hypokalaemia [Recovered/Resolved]

NARRATIVE: CASE EVENT DATE: 20220509
